FAERS Safety Report 25818301 (Version 1)
Quarter: 2025Q3

REPORT INFORMATION
  Report Type: Report from Study
  Country: US (occurrence: US)
  Receive Date: 20250918
  Receipt Date: 20250918
  Transmission Date: 20251020
  Serious: Yes (Other)
  Sender: ALNYLAM PHARMACEUTICALS
  Company Number: US-ALNYLAM PHARMACEUTICALS, INC.-ALN-2025-005708

PATIENT

DRUGS (2)
  1. OXLUMO [Suspect]
     Active Substance: LUMASIRAN
     Indication: Primary hyperoxaluria
     Route: 065
     Dates: start: 20250317, end: 20250317
  2. OXLUMO [Suspect]
     Active Substance: LUMASIRAN
     Route: 065
     Dates: start: 202506, end: 202506

REACTIONS (1)
  - Renal and liver transplant [Unknown]

NARRATIVE: CASE EVENT DATE: 20250901
